FAERS Safety Report 7228194-3 (Version None)
Quarter: 2011Q1

REPORT INFORMATION
  Report Type: 
  Country: None (occurrence: None)
  Receive Date: 20110112
  Receipt Date: 20110112
  Transmission Date: 20110831
  Serious: Yes (Death)
  Sender: FDA-Public Use
  Company Number: None

PATIENT
  Age: 63 Year
  Sex: Male
  Weight: 129.7287 kg

DRUGS (1)
  1. VITAMIN K TAB [Suspect]
     Dates: start: 20101023

REACTIONS (2)
  - ANGIOEDEMA [None]
  - CARDIAC ARREST [None]
